FAERS Safety Report 18925629 (Version 1)
Quarter: 2021Q1

REPORT INFORMATION
  Report Type: Spontaneous
  Country: DE (occurrence: DE)
  Receive Date: 20210223
  Receipt Date: 20210223
  Transmission Date: 20210420
  Serious: Yes (Other)
  Sender: FDA-Public Use
  Company Number: DE-SUN PHARMACEUTICAL INDUSTRIES LTD-2021RR-282012

PATIENT
  Age: 57 Year
  Sex: Male

DRUGS (4)
  1. DICLOFENAC [Suspect]
     Active Substance: DICLOFENAC
     Indication: AXIAL SPONDYLOARTHRITIS
     Dosage: 100 MG, QW (1 DAY PER WEEK)
     Route: 065
  2. COSENTYX [Suspect]
     Active Substance: SECUKINUMAB
     Dosage: 150 MG, QMO (Q4W)
     Route: 065
  3. IBUPROFEN. [Suspect]
     Active Substance: IBUPROFEN
     Indication: AXIAL SPONDYLOARTHRITIS
     Dosage: 600 MG, QD
     Route: 065
  4. COSENTYX [Suspect]
     Active Substance: SECUKINUMAB
     Indication: AXIAL SPONDYLOARTHRITIS
     Dosage: 150 MG (UP?TITRATION)
     Route: 065

REACTIONS (10)
  - Angiocardiogram [Unknown]
  - Rash [Unknown]
  - Nausea [Unknown]
  - Productive cough [Unknown]
  - Herpes zoster [Unknown]
  - Diarrhoea [Unknown]
  - Oral candidiasis [Unknown]
  - Fall [Unknown]
  - Rib fracture [Unknown]
  - Hepatic mass [Not Recovered/Not Resolved]

NARRATIVE: CASE EVENT DATE: 20190214
